FAERS Safety Report 8803447 (Version 2)
Quarter: 2012Q4

REPORT INFORMATION
  Report Type: 
  Country: US (occurrence: US)
  Receive Date: 20120924
  Receipt Date: 20121003
  Transmission Date: 20130627
  Serious: Yes (Other)
  Sender: FDA-Public Use
  Company Number: US-AMGEN-USASP2012050340

PATIENT
  Age: 79 Year
  Sex: Female
  Weight: 64.9 kg

DRUGS (12)
  1. PROLIA [Suspect]
     Indication: OSTEOPOROSIS POSTMENOPAUSAL
     Dosage: 60 mg, q6mo
     Route: 058
     Dates: start: 20120322, end: 20120322
  2. PROLIA [Suspect]
     Dosage: 60 mg, q6mo
     Route: 058
     Dates: start: 20110920, end: 20110920
  3. CALCIUM [Concomitant]
     Dosage: 1200 mg, UNK
     Route: 048
  4. VITAMIN D                          /00318501/ [Concomitant]
     Dosage: UNK
     Route: 048
  5. TOPICORT                           /00028604/ [Concomitant]
     Dosage: UNK
  6. SYNTHROID [Concomitant]
     Dosage: 100 mug, qd
     Route: 048
  7. COZAAR [Concomitant]
     Dosage: 100 mg, qd
     Route: 048
  8. MEDROL                             /00049601/ [Concomitant]
     Dosage: 4 mg, bid
     Route: 048
  9. SINGULAIR [Concomitant]
     Dosage: 10 mg, qhs
  10. MULTIVITAMIN                       /00097801/ [Concomitant]
     Dosage: UNK
     Route: 048
  11. ZANTAC [Concomitant]
     Dosage: 150 mg, bid
     Route: 048
  12. ZOCOR [Concomitant]
     Dosage: 10 mg, qhs
     Route: 048

REACTIONS (5)
  - Lichenoid keratosis [Not Recovered/Not Resolved]
  - Adverse drug reaction [Not Recovered/Not Resolved]
  - Vulvovaginal pruritus [Not Recovered/Not Resolved]
  - Pruritus [Not Recovered/Not Resolved]
  - Rash [Not Recovered/Not Resolved]
